FAERS Safety Report 4285863-5 (Version None)
Quarter: 2004Q1

REPORT INFORMATION
  Report Type: 
  Country: None (occurrence: None)
  Receive Date: 20040203
  Receipt Date: 20040120
  Transmission Date: 20041129
  Serious: Yes (Hospitalization)
  Sender: FDA-Public Use
  Company Number: FR-JNJFOC-20031100389

PATIENT
  Age: 40 Year
  Sex: Female

DRUGS (2)
  1. HALDOL [Suspect]
     Indication: DRUG USE FOR UNKNOWN INDICATION
     Dosage: , IN 1 DAY, ORAL
     Route: 048
     Dates: start: 20031008, end: 20031008
  2. TENORMIN [Concomitant]

REACTIONS (8)
  - DYSKINESIA [None]
  - EXTRAPYRAMIDAL DISORDER [None]
  - MALAISE [None]
  - MEDICATION ERROR [None]
  - MUSCLE CONTRACTIONS INVOLUNTARY [None]
  - PAIN [None]
  - SOMNOLENCE [None]
  - TRISMUS [None]
